FAERS Safety Report 24751349 (Version 2)
Quarter: 2025Q1

REPORT INFORMATION
  Report Type: Report from Study
  Country: FR (occurrence: FR)
  Receive Date: 20241219
  Receipt Date: 20250108
  Transmission Date: 20250408
  Serious: Yes (Congenital Anomaly)
  Sender: BIOGEN
  Company Number: FR-BIOGEN-2024BI01294029

PATIENT

DRUGS (1)
  1. TECFIDERA [Suspect]
     Active Substance: DIMETHYL FUMARATE
     Indication: Maternal exposure timing unspecified
     Route: 050
     Dates: end: 20230722

REACTIONS (1)
  - Talipes [Unknown]
